FAERS Safety Report 20102163 (Version 1)
Quarter: 2021Q4

REPORT INFORMATION
  Report Type: Spontaneous
  Country: US (occurrence: None)
  Receive Date: 20211123
  Receipt Date: 20211123
  Transmission Date: 20220303
  Serious: No
  Sender: FDA-Public Use
  Company Number: None

PATIENT
  Sex: Male
  Weight: 105.6 kg

DRUGS (1)
  1. CYTARABINE [Suspect]
     Active Substance: CYTARABINE
     Dates: end: 20210914

REACTIONS (3)
  - White blood cell count decreased [None]
  - Neutrophil count decreased [None]
  - Asthenia [None]

NARRATIVE: CASE EVENT DATE: 20210920
